FAERS Safety Report 17141681 (Version 3)
Quarter: 2020Q4

REPORT INFORMATION
  Report Type: Spontaneous
  Country: US (occurrence: US)
  Receive Date: 20191211
  Receipt Date: 20201029
  Transmission Date: 20210113
  Serious: No
  Sender: FDA-Public Use
  Company Number: US-SA-2019SA338416

PATIENT

DRUGS (3)
  1. DUPIXENT [Suspect]
     Active Substance: DUPILUMAB
     Indication: DERMATITIS ATOPIC
  2. EPINEPHRINE. [Concomitant]
     Active Substance: EPINEPHRINE
     Dosage: 0.15MG/0.3
  3. DUPIXENT [Suspect]
     Active Substance: DUPILUMAB
     Indication: ILL-DEFINED DISORDER
     Dosage: 300 MG, QOW
     Route: 058
     Dates: start: 20170801

REACTIONS (9)
  - Eye irritation [Recovered/Resolved]
  - Erythema [Unknown]
  - Dermatitis atopic [Recovered/Resolved]
  - Product dose omission issue [Unknown]
  - Ocular hyperaemia [Recovered/Resolved]
  - Rash macular [Unknown]
  - Product dose omission issue [Recovered/Resolved]
  - Rash [Unknown]
  - Eye swelling [Recovered/Resolved]

NARRATIVE: CASE EVENT DATE: 201910
